FAERS Safety Report 6612546-6 (Version None)
Quarter: 2010Q1

REPORT INFORMATION
  Report Type: 
  Country: None (occurrence: None)
  Receive Date: 20100223
  Receipt Date: 20100210
  Transmission Date: 20100710
  Serious: Yes (Hospitalization)
  Sender: FDA-Public Use
  Company Number: 230017M10CAN

PATIENT
  Age: 56 Year
  Sex: Male

DRUGS (5)
  1. REBIF [Suspect]
     Indication: RELAPSING-REMITTING MULTIPLE SCLEROSIS
     Dosage: 44 MCG, 3 IN 1 WEEKS, SUBCUTANEOUS
     Route: 058
     Dates: start: 20090510
  2. MULTI-VITAMINS (MULTI-VITAMINS VITAFIT) [Concomitant]
  3. IBUPROFEN [Concomitant]
  4. OXYCONTIN [Concomitant]
  5. PERCOCET [Concomitant]

REACTIONS (8)
  - AMNESIA [None]
  - COGNITIVE DISORDER [None]
  - DIZZINESS [None]
  - DRUG DOSE OMISSION [None]
  - DRUG WITHDRAWAL SYNDROME [None]
  - GAIT DISTURBANCE [None]
  - MOBILITY DECREASED [None]
  - PAIN IN EXTREMITY [None]
